FAERS Safety Report 6199497-9 (Version None)
Quarter: 2009Q2

REPORT INFORMATION
  Report Type: 
  Country: None (occurrence: None)
  Receive Date: 20090520
  Receipt Date: 20090520
  Transmission Date: 20091009
  Serious: Yes (Hospitalization)
  Sender: FDA-Public Use
  Company Number: None

PATIENT
  Age: 35 Year
  Sex: Male
  Weight: 102.5129 kg

DRUGS (1)
  1. PRISTIQ [Suspect]
     Indication: DEPRESSION
     Dosage: 100MG ONCE PO QD ORAL/PO
     Route: 048
     Dates: start: 20090327, end: 20090506

REACTIONS (4)
  - ANGER [None]
  - FEELING ABNORMAL [None]
  - HALLUCINATION, VISUAL [None]
  - VIOLENCE-RELATED SYMPTOM [None]
